FAERS Safety Report 26000337 (Version 1)
Quarter: 2025Q4

REPORT INFORMATION
  Report Type: Spontaneous
  Country: CN (occurrence: CN)
  Receive Date: 20251105
  Receipt Date: 20251105
  Transmission Date: 20260117
  Serious: Yes (Other)
  Sender: BAYER HEALTHCARE PHARMACEUTICALS INC.
  Company Number: CN-BAYER-2025A142191

PATIENT
  Age: 4 Year
  Sex: Male

DRUGS (2)
  1. VITRAKVI [Suspect]
     Active Substance: LAROTRECTINIB
     Indication: Sarcoma
     Dosage: 100 MG/M2, BID
     Route: 048
     Dates: start: 202009
  2. VITRAKVI [Suspect]
     Active Substance: LAROTRECTINIB
     Indication: NTRK gene fusion positive

REACTIONS (4)
  - Hyperkalaemia [None]
  - Hypotension [None]
  - Proteinuria [None]
  - Alanine aminotransferase increased [None]

NARRATIVE: CASE EVENT DATE: 20220701
